FAERS Safety Report 20505849 (Version 1)
Quarter: 2022Q1

REPORT INFORMATION
  Report Type: Spontaneous
  Country: US (occurrence: US)
  Receive Date: 20220223
  Receipt Date: 20220223
  Transmission Date: 20220423
  Serious: No
  Sender: FDA-Public Use
  Company Number: US-GLENMARK PHARMACEUTICALS-2021GMK069618

PATIENT

DRUGS (3)
  1. ROSUVASTATIN CALCIUM [Suspect]
     Active Substance: ROSUVASTATIN CALCIUM
     Indication: Blood cholesterol increased
     Dosage: HALF TABLET, ONCE A DAY
     Route: 048
     Dates: start: 202104
  2. SINGULAIR [Concomitant]
     Active Substance: MONTELUKAST SODIUM
     Indication: Asthma
     Dosage: UNK, OD
     Route: 048
  3. CALCIUM CARBONATE\CHOLECALCIFEROL [Concomitant]
     Active Substance: CALCIUM CARBONATE\CHOLECALCIFEROL
     Indication: Vitamin supplementation
     Dosage: UNK, OD
     Route: 048

REACTIONS (5)
  - Wrong technique in product usage process [Unknown]
  - Dyspepsia [Not Recovered/Not Resolved]
  - Eructation [Not Recovered/Not Resolved]
  - Gastritis [Not Recovered/Not Resolved]
  - Abdominal discomfort [Not Recovered/Not Resolved]

NARRATIVE: CASE EVENT DATE: 20210101
